FAERS Safety Report 17139974 (Version 1)
Quarter: 2019Q4

REPORT INFORMATION
  Report Type: Spontaneous
  Country: US (occurrence: US)
  Receive Date: 20191211
  Receipt Date: 20191211
  Transmission Date: 20200122
  Serious: No
  Sender: FDA-Public Use
  Company Number: US-UCBSA-2016015597

PATIENT
  Age: 7 Year
  Sex: Female

DRUGS (1)
  1. KEPPRA XR [Suspect]
     Active Substance: LEVETIRACETAM
     Indication: EPILEPSY
     Dosage: 400 MG, 2X/DAY (BID) 400 MORNING AND NIGHT
     Dates: start: 2015

REACTIONS (5)
  - Petit mal epilepsy [Not Recovered/Not Resolved]
  - Clumsiness [Not Recovered/Not Resolved]
  - Anxiety [Not Recovered/Not Resolved]
  - Focal dyscognitive seizures [Not Recovered/Not Resolved]
  - Off label use [Unknown]

NARRATIVE: CASE EVENT DATE: 2015
